FAERS Safety Report 10191352 (Version 1)
Quarter: 2014Q2

REPORT INFORMATION
  Report Type: Spontaneous
  Country: GB (occurrence: None)
  Receive Date: 20140521
  Receipt Date: 20140521
  Transmission Date: 20141212
  Serious: Yes (Disabling, Other)
  Sender: FDA-Public Use
  Company Number: AUR-APL-2014-05917

PATIENT
  Age: 40 Year
  Sex: Female
  Weight: 92 kg

DRUGS (3)
  1. SERTRALINE [Suspect]
     Indication: DEPRESSION
     Route: 048
     Dates: start: 20131227
  2. AMITRIPTYLINE (AMITRIPTYLINE) [Suspect]
     Indication: PRODUCT USED FOR UNKNOWN INDICATION
     Dosage: 10 MG, UNKNOWN
  3. CERELLE (NICERGOLINE) [Concomitant]

REACTIONS (10)
  - Apathy [None]
  - Suicidal ideation [None]
  - Urinary incontinence [None]
  - Decreased appetite [None]
  - Feeling abnormal [None]
  - Mental impairment [None]
  - Asthenia [None]
  - Discomfort [None]
  - Impaired work ability [None]
  - Neglect of personal appearance [None]
